FAERS Safety Report 5265389-2 (Version None)
Quarter: 2007Q1

REPORT INFORMATION
  Report Type: 
  Country: None (occurrence: None)
  Receive Date: 20061213
  Receipt Date: 20060403
  Transmission Date: 20070707
  Serious: Yes (Other)
  Sender: FDA-Public Use
  Company Number: 2005UW15331

PATIENT
  Age: 60 Year
  Sex: Female
  Weight: 61.234 kg

DRUGS (5)
  1. IRESSA [Suspect]
     Indication: BRONCHIOLOALVEOLAR CARCINOMA
     Dates: start: 20050101
  2. IRESSA [Suspect]
     Indication: NON-SMALL CELL LUNG CANCER
     Dates: start: 20050101
  3. KEFLEX [Concomitant]
  4. LIPITOR [Concomitant]
  5. PROZAC [Concomitant]

REACTIONS (5)
  - DERMATITIS [None]
  - PRURITUS [None]
  - RASH [None]
  - SKIN INFECTION [None]
  - STAPHYLOCOCCAL INFECTION [None]
